FAERS Safety Report 16828265 (Version 2)
Quarter: 2019Q4

REPORT INFORMATION
  Report Type: Report from Study
  Country: AU (occurrence: AU)
  Receive Date: 20190919
  Receipt Date: 20191112
  Transmission Date: 20200122
  Serious: Yes (Hospitalization)
  Sender: FDA-Public Use
  Company Number: PHHO2019AU009281

PATIENT
  Age: 2 Year
  Sex: Female
  Weight: 14.6 kg

DRUGS (6)
  1. ONDANSETRON [Concomitant]
     Active Substance: ONDANSETRON
     Indication: NAUSEA
     Dosage: 2 MG, PRN
     Route: 048
     Dates: start: 201812
  2. BACTRIM [Concomitant]
     Active Substance: SULFAMETHOXAZOLE\TRIMETHOPRIM
     Indication: PROPHYLAXIS
     Dosage: 6 ML, TWICE WEEKLY
     Route: 048
     Dates: start: 20180527
  3. PANOBINOSTAT [Suspect]
     Active Substance: PANOBINOSTAT
     Indication: ATYPICAL TERATOID/RHABDOID TUMOUR OF CNS
     Dosage: 10 MG/M2
     Route: 048
     Dates: start: 20190614, end: 20190808
  4. ONDANSETRON [Concomitant]
     Active Substance: ONDANSETRON
     Indication: VOMITING
  5. PANOBINOSTAT [Suspect]
     Active Substance: PANOBINOSTAT
     Dosage: 8 MG/M2
     Route: 048
     Dates: start: 20190906, end: 20190911
  6. PANADOL [Concomitant]
     Active Substance: ACETAMINOPHEN
     Indication: PYREXIA
     Dosage: 15 MG/KG, PRN
     Route: 065
     Dates: start: 20190617

REACTIONS (1)
  - Febrile neutropenia [Recovered/Resolved with Sequelae]

NARRATIVE: CASE EVENT DATE: 20190911
